FAERS Safety Report 6011142-1 (Version None)
Quarter: 2008Q4

REPORT INFORMATION
  Report Type: 
  Country: None (occurrence: None)
  Receive Date: 20081217
  Receipt Date: 20081217
  Transmission Date: 20090506
  Serious: No
  Sender: FDA-Public Use
  Company Number: None

PATIENT
  Age: 54 Year
  Sex: Male
  Weight: 86.1834 kg

DRUGS (2)
  1. MALARONE [Suspect]
     Indication: MALARIA PROPHYLAXIS
     Dosage: ONE TABLET DAILY BY MOUTH
     Route: 048
     Dates: end: 20081106
  2. LEVOTHYROXINE [Concomitant]

REACTIONS (1)
  - RASH PRURITIC [None]
